FAERS Safety Report 24092836 (Version 1)
Quarter: 2024Q3

REPORT INFORMATION
  Report Type: Spontaneous
  Country: PT (occurrence: PT)
  Receive Date: 20240715
  Receipt Date: 20240715
  Transmission Date: 20241016
  Serious: Yes (Death, Hospitalization)
  Sender: MYLAN
  Company Number: PT-002147023-NVSC2024PT138764

PATIENT
  Age: 74 Year
  Sex: Female

DRUGS (4)
  1. VALSARTAN [Suspect]
     Active Substance: VALSARTAN
     Indication: Product used for unknown indication
     Dosage: UNK
     Route: 065
  2. HYDROCHLOROTHIAZIDE [Concomitant]
     Active Substance: HYDROCHLOROTHIAZIDE
     Indication: Product used for unknown indication
     Dosage: UNK
     Route: 065
  3. FUROSEMIDE [Concomitant]
     Active Substance: FUROSEMIDE
     Indication: Oedema
     Dosage: 40 MILLIGRAM, QD
     Route: 065
  4. FUROSEMIDE [Concomitant]
     Active Substance: FUROSEMIDE
     Indication: Hyperthyroidism

REACTIONS (11)
  - Oedema peripheral [Fatal]
  - Dermatitis exfoliative generalised [Fatal]
  - Intervertebral discitis [Fatal]
  - Diffuse alopecia [Fatal]
  - Cutaneous T-cell lymphoma [Fatal]
  - Ectropion [Fatal]
  - Staphylococcal bacteraemia [Fatal]
  - Cardiac failure [Fatal]
  - Back pain [Fatal]
  - Sepsis [Fatal]
  - Septic rash [Fatal]
